FAERS Safety Report 9871405 (Version 2)
Quarter: 2014Q3

REPORT INFORMATION
  Report Type: Report from Study
  Country: CA (occurrence: CA)
  Receive Date: 20140205
  Receipt Date: 20140908
  Transmission Date: 20150326
  Serious: Yes (Death, Hospitalization)
  Sender: FDA-Public Use
  Company Number: PHHY2014CA014218

PATIENT
  Sex: Female

DRUGS (1)
  1. CLOZARIL [Suspect]
     Active Substance: CLOZAPINE
     Dosage: 200 MG, DAILY
     Dates: start: 20131004

REACTIONS (3)
  - Cardiac failure [Fatal]
  - Pancreatitis [Unknown]
  - Infection [Unknown]
